FAERS Safety Report 16040633 (Version 1)
Quarter: 2019Q1

REPORT INFORMATION
  Report Type: Spontaneous
  Country: US (occurrence: US)
  Receive Date: 20190306
  Receipt Date: 20190306
  Transmission Date: 20190418
  Serious: No
  Sender: FDA-Public Use
  Company Number: US-BAUSCH-BL-2018-015282

PATIENT
  Age: 70 Year
  Sex: Male
  Weight: 91.25 kg

DRUGS (3)
  1. UCERIS [Suspect]
     Active Substance: BUDESONIDE
     Dosage: ONE TABLET EVERY DAY
     Route: 048
     Dates: start: 201805
  2. UCERIS [Suspect]
     Active Substance: BUDESONIDE
     Route: 048
     Dates: start: 201805
  3. UCERIS [Suspect]
     Active Substance: BUDESONIDE
     Indication: COLITIS
     Dosage: ONE TABLET EVERY OTHER DAY
     Route: 048
     Dates: start: 2018

REACTIONS (3)
  - Lip swelling [Recovering/Resolving]
  - Off label use [Not Recovered/Not Resolved]
  - Swelling face [Recovering/Resolving]

NARRATIVE: CASE EVENT DATE: 2018
